FAERS Safety Report 5863574-X (Version None)
Quarter: 2008Q3

REPORT INFORMATION
  Report Type: 
  Country: None (occurrence: None)
  Receive Date: 20080828
  Receipt Date: 20080825
  Transmission Date: 20090109
  Serious: Yes (Life-Threatening, Hospitalization)
  Sender: FDA-Public Use
  Company Number: US-BOEHRINGER INGELHEIM GMBH, GERMANY-2008-BP-13353BP

PATIENT
  Age: 77 Year
  Sex: Female

DRUGS (4)
  1. ZANTAC 75 [Suspect]
     Indication: DYSPEPSIA
     Route: 048
     Dates: start: 20050101, end: 20050101
  2. ENALAPRIL MALEATE [Concomitant]
     Indication: HYPERTENSION
     Route: 048
     Dates: start: 19980101
  3. LIPITOR [Concomitant]
     Indication: HYPERLIPIDAEMIA
     Route: 048
     Dates: start: 19980101
  4. DIGOXIN [Concomitant]
     Route: 048
     Dates: start: 20050101

REACTIONS (1)
  - BLOOD PRESSURE INCREASED [None]
